FAERS Safety Report 7204924-1 (Version None)
Quarter: 2010Q4

REPORT INFORMATION
  Report Type: 
  Country: None (occurrence: None)
  Receive Date: 20101230
  Receipt Date: 20101227
  Transmission Date: 20110411
  Serious: Yes (Other)
  Sender: FDA-Public Use
  Company Number: FR-AMGEN-FRASP2010008785

PATIENT

DRUGS (2)
  1. NPLATE [Suspect]
     Indication: IDIOPATHIC THROMBOCYTOPENIC PURPURA
     Dosage: 3 A?G/KG, UNK
  2. NPLATE [Suspect]
     Dosage: 0.4 A?G/KG, UNK
     Dates: start: 20101201

REACTIONS (2)
  - DRUG INEFFECTIVE [None]
  - PLATELET COUNT DECREASED [None]
